FAERS Safety Report 14125313 (Version 3)
Quarter: 2018Q2

REPORT INFORMATION
  Report Type: Not Available
  Country: US (occurrence: US)
  Receive Date: 20171025
  Receipt Date: 20180419
  Transmission Date: 20180711
  Serious: No
  Sender: FDA-Public Use
  Company Number: US-NEUROCRINE BIOSCIENCES INC.-2017NBI00903

PATIENT
  Age: 61 Year
  Sex: Female

DRUGS (8)
  1. AMBIEN [Concomitant]
     Active Substance: ZOLPIDEM TARTRATE
  2. INGREZZA [Suspect]
     Active Substance: VALBENAZINE
     Indication: DYSTONIA
     Route: 048
     Dates: start: 20170915, end: 20171009
  3. BUPROPION. [Concomitant]
     Active Substance: BUPROPION
  4. INGREZZA [Suspect]
     Active Substance: VALBENAZINE
     Indication: PARKINSON^S DISEASE
  5. INGREZZA [Suspect]
     Active Substance: VALBENAZINE
     Indication: EXTRAPYRAMIDAL DISORDER
     Route: 048
     Dates: start: 20170815, end: 20170914
  6. CLOZARIL [Concomitant]
     Active Substance: CLOZAPINE
     Route: 048
     Dates: start: 1993
  7. ATIVAN [Concomitant]
     Active Substance: LORAZEPAM
  8. PROPRANOLOL [Concomitant]
     Active Substance: PROPRANOLOL HYDROCHLORIDE
     Indication: TREMOR

REACTIONS (7)
  - Suicidal ideation [Recovered/Resolved]
  - Hyperhidrosis [Recovered/Resolved]
  - Nausea [Recovered/Resolved]
  - Arthralgia [Recovered/Resolved]
  - Extrapyramidal disorder [Unknown]
  - Myalgia [Recovered/Resolved]
  - Malaise [Recovered/Resolved]

NARRATIVE: CASE EVENT DATE: 201708
